FAERS Safety Report 10092584 (Version 1)
Quarter: 2014Q2

REPORT INFORMATION
  Report Type: Spontaneous
  Country: US (occurrence: US)
  Receive Date: 20140421
  Receipt Date: 20140421
  Transmission Date: 20141212
  Serious: No
  Sender: FDA-Public Use
  Company Number: US-SANOFI-AVENTIS-2013SA057750

PATIENT
  Age: 21 Year
  Sex: Male

DRUGS (1)
  1. ALLEGRA [Suspect]
     Indication: MULTIPLE ALLERGIES
     Dosage: TAKEN FROM-1-2 WEEKS AGO, TAKEN TO-AFTER 5?DAYS
     Route: 065

REACTIONS (2)
  - Epistaxis [Recovered/Resolved]
  - Nasal dryness [Recovered/Resolved]
